FAERS Safety Report 17578890 (Version 1)
Quarter: 2020Q1

REPORT INFORMATION
  Report Type: Spontaneous
  Country: JP (occurrence: JP)
  Receive Date: 20200325
  Receipt Date: 20200325
  Transmission Date: 20200409
  Serious: Yes (Other)
  Sender: FDA-Public Use
  Company Number: JP-BEH-2020114722

PATIENT
  Age: 17 Month
  Sex: Male

DRUGS (3)
  1. ASPIRIN [ACETYLSALICYLIC ACID] [Concomitant]
     Active Substance: ASPIRIN
     Route: 065
  2. HUMAN IMMUNOGLOBULIN (INN) [Suspect]
     Active Substance: HUMAN IMMUNOGLOBULIN G
     Dosage: 1 GRAM PER KILOGRAM FOR 2 DAYS
     Route: 042
  3. HUMAN IMMUNOGLOBULIN (INN) [Suspect]
     Active Substance: HUMAN IMMUNOGLOBULIN G
     Indication: KAWASAKI^S DISEASE
     Dosage: 2 GRAM PER KILOGRAM,1 DAY
     Route: 042

REACTIONS (12)
  - Rash [Unknown]
  - Lymphadenopathy [Unknown]
  - Aspartate aminotransferase increased [Unknown]
  - Pyrexia [Unknown]
  - Drug reaction with eosinophilia and systemic symptoms [Unknown]
  - Dermatitis exfoliative [Unknown]
  - Alanine aminotransferase increased [Unknown]
  - Blood lactate dehydrogenase increased [Unknown]
  - Chemokine increased [Unknown]
  - White blood cell count increased [Unknown]
  - Rash maculo-papular [Unknown]
  - Lymphocyte stimulation test positive [Unknown]
